FAERS Safety Report 20717021 (Version 1)
Quarter: 2022Q2

REPORT INFORMATION
  Report Type: Spontaneous
  Country: US (occurrence: US)
  Receive Date: 20220417
  Receipt Date: 20220417
  Transmission Date: 20220721
  Serious: No
  Sender: FDA-Public Use
  Company Number: US-SA-SAC20220412000766

PATIENT
  Age: 12 Year
  Sex: Female

DRUGS (8)
  1. DUPIXENT [Suspect]
     Active Substance: DUPILUMAB
     Indication: Dermatitis atopic
     Dosage: 300 MG, QOW
     Route: 058
     Dates: start: 20220330
  2. CETIRIZINE HCL [Concomitant]
     Active Substance: CETIRIZINE HYDROCHLORIDE
  3. FLOVENT HFA [Concomitant]
     Active Substance: FLUTICASONE PROPIONATE
  4. MONTELUKAST SODIUM [Concomitant]
     Active Substance: MONTELUKAST SODIUM
  5. YUHAN AMOXICILLIN CLAVULANATE [Concomitant]
  6. PREDNISONE [Concomitant]
     Active Substance: PREDNISONE
  7. CEFDINIR [Concomitant]
     Active Substance: CEFDINIR
  8. AZELASTINE [Concomitant]
     Active Substance: AZELASTINE

REACTIONS (2)
  - Eye discharge [Unknown]
  - Product use issue [Unknown]

NARRATIVE: CASE EVENT DATE: 20220330
